FAERS Safety Report 9066309 (Version 1)
Quarter: 2013Q1

REPORT INFORMATION
  Report Type: Report from Study
  Country: US (occurrence: US)
  Receive Date: 20130131
  Receipt Date: 20130131
  Transmission Date: 20140127
  Serious: No
  Sender: FDA-Public Use
  Company Number: US-ABBOTT-12P-163-1009127-00

PATIENT
  Age: 54 None
  Sex: Female
  Weight: 58.11 kg

DRUGS (3)
  1. HUMIRA [Suspect]
     Indication: CROHN^S DISEASE
     Dates: start: 20121104, end: 20121104
  2. PREDNISOLONE [Suspect]
     Indication: CROHN^S DISEASE
     Dates: start: 201211
  3. TOTAL PARENTERAL NUTRITION (NON-ABBOTT) [Concomitant]
     Indication: CROHN^S DISEASE
     Dates: start: 201211

REACTIONS (6)
  - Feeling abnormal [Not Recovered/Not Resolved]
  - Feeling abnormal [Not Recovered/Not Resolved]
  - Injection site pain [Recovered/Resolved]
  - Asthenia [Not Recovered/Not Resolved]
  - Diarrhoea [Not Recovered/Not Resolved]
  - Burning sensation [Not Recovered/Not Resolved]
